FAERS Safety Report 4354838-X (Version None)
Quarter: 2004Q2

REPORT INFORMATION
  Report Type: 
  Country: None (occurrence: None)
  Receive Date: 20040507
  Receipt Date: 20030916
  Transmission Date: 20050107
  Serious: Yes (Death)
  Sender: FDA-Public Use
  Company Number: PH-GLAXOSMITHKLINE-B0310098A

PATIENT
  Age: 37 Year
  Sex: Male

DRUGS (2)
  1. ALBENDAZOLE [Suspect]
     Route: 065
     Dates: start: 20030805, end: 20030805
  2. DIETHYLCARBAMAZINE [Suspect]
     Route: 065
     Dates: start: 20030805, end: 20030805

REACTIONS (4)
  - ABDOMINAL DISTENSION [None]
  - ABDOMINAL PAIN [None]
  - LOOSE STOOLS [None]
  - MYOCARDIAL INFARCTION [None]
